FAERS Safety Report 4574918-3 (Version None)
Quarter: 2005Q1

REPORT INFORMATION
  Report Type: 
  Country: None (occurrence: None)
  Receive Date: 20050208
  Receipt Date: 20040806
  Transmission Date: 20050727
  Serious: No
  Sender: FDA-Public Use
  Company Number: US-GLAXOSMITHKLINE-A0521316A

PATIENT
  Age: 30 Year
  Sex: Male

DRUGS (2)
  1. PAXIL CR [Suspect]
     Indication: PANIC DISORDER
     Dosage: 75MG PER DAY
     Route: 048
     Dates: start: 20040301, end: 20040804
  2. KLONOPIN [Concomitant]

REACTIONS (1)
  - PANIC ATTACK [None]
